FAERS Safety Report 6147821-5 (Version None)
Quarter: 2009Q2

REPORT INFORMATION
  Report Type: 
  Country: None (occurrence: None)
  Receive Date: 20090408
  Receipt Date: 20090305
  Transmission Date: 20091009
  Serious: Yes (Hospitalization)
  Sender: FDA-Public Use
  Company Number: US-RB-013879-09

PATIENT
  Age: 73 Year
  Sex: Female

DRUGS (4)
  1. MUCINEX DM [Suspect]
     Indication: COUGH
     Dosage: 1 DF FOLLOWED BY 1 DF 6 HORUS LATER
     Route: 048
     Dates: start: 20090302
  2. PREVACID [Concomitant]
  3. LISINOPRIL [Concomitant]
  4. LOVASTATIN [Concomitant]

REACTIONS (1)
  - HYPOAESTHESIA [None]
